FAERS Safety Report 5327802-1 (Version None)
Quarter: 2007Q2

REPORT INFORMATION
  Report Type: 
  Country: None (occurrence: None)
  Receive Date: 20070517
  Receipt Date: 20070506
  Transmission Date: 20071010
  Serious: Yes (Other)
  Sender: FDA-Public Use
  Company Number: US-JNJFOC-20070400264

PATIENT
  Sex: Female
  Weight: 44.91 kg

DRUGS (19)
  1. LEVAQUIN [Suspect]
     Indication: LOCALISED INFECTION
     Route: 048
  2. ASACOL [Concomitant]
     Indication: COLITIS
     Route: 048
  3. PROGESTERONE [Concomitant]
     Route: 067
  4. SOMA [Concomitant]
     Route: 048
  5. ADVIL [Concomitant]
     Route: 048
  6. ASPIRIN [Concomitant]
     Route: 048
  7. MINOCYCLINE HCL [Concomitant]
     Indication: ROSACEA
     Route: 048
  8. CORTICO B5B6 [Concomitant]
     Route: 048
  9. EPAXTRA FISH OIL [Concomitant]
     Route: 048
  10. CO-Q10 [Concomitant]
     Route: 048
  11. BBB-50 [Concomitant]
     Route: 048
  12. CALCIUM WITH VITAMIN D [Concomitant]
     Route: 048
  13. MULTI-VITAMIN [Concomitant]
     Route: 048
  14. MILK THISTLE [Concomitant]
     Route: 048
  15. DHEA [Concomitant]
     Route: 048
  16. PROBIOTIC [Concomitant]
     Route: 048
  17. REISHI [Concomitant]
     Route: 065
  18. SHIITAKE [Concomitant]
     Route: 065
  19. ASTRAGALUS [Concomitant]
     Route: 065

REACTIONS (2)
  - COLITIS ULCERATIVE [None]
  - VULVOVAGINAL MYCOTIC INFECTION [None]
